FAERS Safety Report 9732653 (Version 1)
Quarter: 2013Q4

REPORT INFORMATION
  Report Type: Spontaneous
  Country: US (occurrence: US)
  Receive Date: 20131205
  Receipt Date: 20131205
  Transmission Date: 20140711
  Serious: Yes (Hospitalization)
  Sender: FDA-Public Use
  Company Number: US-MYLANLABS-2013S1026580

PATIENT
  Age: 67 Year
  Sex: Female

DRUGS (4)
  1. CARVEDILOL [Suspect]
     Route: 065
  2. AMLODIPINE [Concomitant]
     Route: 065
  3. ASPIRIN [Concomitant]
     Route: 065
  4. LEVOTHYROXINE SODIUM [Concomitant]
     Route: 065

REACTIONS (1)
  - Hepatitis [Recovering/Resolving]
